FAERS Safety Report 5127992-X (Version None)
Quarter: 2006Q4

REPORT INFORMATION
  Report Type: 
  Country: None (occurrence: None)
  Receive Date: 20061010
  Receipt Date: 20060927
  Transmission Date: 20070319
  Serious: Yes (Hospitalization)
  Sender: FDA-Public Use
  Company Number: 2006117564

PATIENT
  Age: 49 Year
  Sex: Female

DRUGS (1)
  1. RANITIDINE [Suspect]
     Indication: ALLERGY TEST
     Dosage: 75 MG, ORAL
     Route: 048

REACTIONS (10)
  - ANAPHYLACTIC REACTION [None]
  - DOCUMENTED HYPERSENSITIVITY TO ADMINISTERED DRUG [None]
  - DYSPHAGIA [None]
  - DYSPHONIA [None]
  - DYSPNOEA [None]
  - HYPOAESTHESIA [None]
  - PHARYNGEAL OEDEMA [None]
  - RHONCHI [None]
  - SWELLING FACE [None]
  - TONGUE OEDEMA [None]
